FAERS Safety Report 8189407-7 (Version None)
Quarter: 2012Q1

REPORT INFORMATION
  Report Type: 
  Country: None (occurrence: None)
  Receive Date: 20120302
  Receipt Date: 20120221
  Transmission Date: 20120608
  Serious: Yes (Other)
  Sender: FDA-Public Use
  Company Number: 2012SP005774

PATIENT
  Age: 28 Year
  Sex: Female
  Weight: 85 kg

DRUGS (1)
  1. NUVARING [Suspect]
     Indication: CONTRACEPTION
     Dates: start: 20110407, end: 20111125

REACTIONS (2)
  - UTERINE CERVICAL EROSION [None]
  - METRORRHAGIA [None]
